FAERS Safety Report 4758852-1 (Version None)
Quarter: 2005Q3

REPORT INFORMATION
  Report Type: 
  Country: None (occurrence: None)
  Receive Date: 20050831
  Receipt Date: 20050815
  Transmission Date: 20060218
  Serious: Yes (Hospitalization, Disabling)
  Sender: FDA-Public Use
  Company Number: TRP_0284_2005

PATIENT
  Age: 51 Year
  Sex: Male

DRUGS (5)
  1. RIBASPHERE [Suspect]
     Indication: HEPATITIS C
     Dosage: 600 MG BID PO
     Route: 048
     Dates: start: 20041014, end: 20041108
  2. INFERGEN [Suspect]
     Indication: HEPATITIS C
     Dosage: 15 MCG QDAY SC
     Route: 058
     Dates: start: 20041014, end: 20041108
  3. SYNTHROID [Concomitant]
  4. AMBIEN [Concomitant]
  5. PROTONIX [Concomitant]

REACTIONS (5)
  - ABASIA [None]
  - CARNITINE DEFICIENCY [None]
  - FATIGUE [None]
  - HEPATIC CIRRHOSIS [None]
  - MUSCULAR WEAKNESS [None]
